FAERS Safety Report 15436599 (Version 1)
Quarter: 2018Q3

REPORT INFORMATION
  Report Type: Spontaneous
  Country: US (occurrence: US)
  Receive Date: 20180927
  Receipt Date: 20180927
  Transmission Date: 20181010
  Serious: No
  Sender: FDA-Public Use
  Company Number: US-MYLANLABS-2018M1068542

PATIENT
  Sex: Female

DRUGS (3)
  1. PERPHENAZINE. [Suspect]
     Active Substance: PERPHENAZINE
     Indication: PRODUCT USED FOR UNKNOWN INDICATION
     Dosage: 1 DF, AM
  2. PERPHENAZINE. [Suspect]
     Active Substance: PERPHENAZINE
     Dosage: 2 DF, PM
  3. LATUDA [Suspect]
     Active Substance: LURASIDONE HYDROCHLORIDE
     Indication: BIPOLAR DISORDER
     Dosage: 2 DF, QD (AT BEDTIME)
     Route: 048

REACTIONS (5)
  - Tic [Unknown]
  - Vision blurred [Unknown]
  - Somnolence [Unknown]
  - Restless legs syndrome [Unknown]
  - Restlessness [Unknown]
